FAERS Safety Report 23249029 (Version 3)
Quarter: 2024Q1

REPORT INFORMATION
  Report Type: Spontaneous
  Country: DE (occurrence: DE)
  Receive Date: 20231201
  Receipt Date: 20240311
  Transmission Date: 20240409
  Serious: Yes (Other)
  Sender: FDA-Public Use
  Company Number: DE-BRISTOL-MYERS SQUIBB COMPANY-2023-170384

PATIENT
  Age: 55 Year
  Sex: Female
  Weight: 67 kg

DRUGS (4)
  1. MAVACAMTEN [Suspect]
     Active Substance: MAVACAMTEN
     Indication: Hypertrophic cardiomyopathy
     Route: 048
     Dates: start: 20230916, end: 20231123
  2. MAVACAMTEN [Suspect]
     Active Substance: MAVACAMTEN
     Dates: start: 20231216
  3. BISOPROLOL [Concomitant]
     Active Substance: BISOPROLOL\BISOPROLOL FUMARATE
     Indication: Hypertrophic cardiomyopathy
     Route: 048
  4. EUTHYROX [Concomitant]
     Active Substance: LEVOTHYROXINE SODIUM
     Indication: Product used for unknown indication
     Route: 048

REACTIONS (2)
  - Electrocardiogram QT prolonged [Recovering/Resolving]
  - Transvalvular pressure gradient increased [Unknown]

NARRATIVE: CASE EVENT DATE: 20231115
